FAERS Safety Report 10598389 (Version 1)
Quarter: 2014Q4

REPORT INFORMATION
  Report Type: Spontaneous
  Country: JP (occurrence: JP)
  Receive Date: 20141121
  Receipt Date: 20141121
  Transmission Date: 20150529
  Serious: Yes (Hospitalization)
  Sender: FDA-Public Use
  Company Number: JP-MYLANLABS-2014M1011416

PATIENT

DRUGS (9)
  1. OMEPRAZOLE. [Concomitant]
     Active Substance: OMEPRAZOLE
     Route: 048
  2. MECOBALAMIN [Concomitant]
     Active Substance: METHYLCOBALAMIN
     Route: 048
  3. NIFEDIPINE. [Concomitant]
     Active Substance: NIFEDIPINE
     Route: 048
  4. ALFACALCIDOL [Concomitant]
     Active Substance: ALFACALCIDOL
     Route: 048
  5. CELECOXIB. [Suspect]
     Active Substance: CELECOXIB
     Indication: ARTHRALGIA
     Route: 048
  6. PREDNISOLONE. [Concomitant]
     Active Substance: PREDNISOLONE
     Dosage: 5 MG, QD
     Route: 048
  7. IMIDAPRIL [Concomitant]
     Active Substance: IMIDAPRIL
     Route: 048
  8. RISEDRONIC ACID [Concomitant]
     Active Substance: RISEDRONIC ACID
     Route: 048
  9. LOXOPROFEN [Concomitant]
     Active Substance: LOXOPROFEN
     Route: 048

REACTIONS (3)
  - Malaise [Recovered/Resolved]
  - Drug-induced liver injury [Recovered/Resolved]
  - Pyrexia [Recovered/Resolved]
